FAERS Safety Report 10390127 (Version 1)
Quarter: 2014Q3

REPORT INFORMATION
  Report Type: Spontaneous
  Country: JP (occurrence: JP)
  Receive Date: 20140818
  Receipt Date: 20140818
  Transmission Date: 20150326
  Serious: Yes (Life-Threatening, Other)
  Sender: FDA-Public Use
  Company Number: JP-ASTRAZENECA-2014SE60834

PATIENT
  Age: 37 Year
  Sex: Female
  Weight: 83.3 kg

DRUGS (4)
  1. ANTIEPILEPTICS [Concomitant]
     Active Substance: UNSPECIFIED INGREDIENT
  2. SEROQUEL [Suspect]
     Active Substance: QUETIAPINE FUMARATE
     Route: 048
     Dates: start: 20140806
  3. HYPNOSEDATIVE/ANXIOLYTIC [Concomitant]
  4. HYPNOSEDATIVE/ANXIOLYTIC [Concomitant]

REACTIONS (4)
  - Intentional overdose [Unknown]
  - Rhonchi [Unknown]
  - Suicide attempt [Unknown]
  - Coma [Unknown]

NARRATIVE: CASE EVENT DATE: 20140806
